FAERS Safety Report 8596749-X (Version None)
Quarter: 2012Q3

REPORT INFORMATION
  Report Type: 
  Country: None (occurrence: None)
  Receive Date: 20120815
  Receipt Date: 20120808
  Transmission Date: 20120928
  Serious: No
  Sender: FDA-Public Use
  Company Number: GB-PFIZER INC-2012087891

PATIENT
  Age: 78 Year
  Sex: Female

DRUGS (2)
  1. SYTRON [Concomitant]
     Indication: IRON DEFICIENCY
     Dosage: UNK
  2. IBUPROFEN [Suspect]
     Indication: OSTEOARTHRITIS
     Dosage: 200 MG, 3X/DAY
     Route: 048
     Dates: start: 20100616

REACTIONS (1)
  - IRON DEFICIENCY ANAEMIA [None]
